FAERS Safety Report 9386934 (Version 1)
Quarter: 2013Q3

REPORT INFORMATION
  Report Type: Report from Study
  Country: NL (occurrence: NL)
  Receive Date: 20130708
  Receipt Date: 20130708
  Transmission Date: 20140515
  Serious: Yes (Other)
  Sender: FDA-Public Use
  Company Number: NL-BAYER-2013-078562

PATIENT
  Age: 58 Year
  Sex: Female

DRUGS (5)
  1. BETAFERON [Suspect]
     Indication: MULTIPLE SCLEROSIS
     Dosage: 0.25 MG, QOD
     Route: 058
     Dates: start: 1999
  2. PARACETAMOL [Concomitant]
     Dosage: 2X 500 MG /24U
  3. ARTHROTEC [DICLOFENAC SODIUM] [Concomitant]
     Dosage: 1 DGS
  4. DEXAMETHASON [Concomitant]
  5. VITAMIN B12 [Concomitant]
     Dosage: INJECT 1X 9WK

REACTIONS (2)
  - Lung neoplasm malignant [Unknown]
  - Metastases to bone [Unknown]
